FAERS Safety Report 20652603 (Version 1)
Quarter: 2022Q1

REPORT INFORMATION
  Report Type: Spontaneous
  Country: CA (occurrence: None)
  Receive Date: 20220330
  Receipt Date: 20220330
  Transmission Date: 20220424
  Serious: Yes (Other)
  Sender: FDA-Public Use
  Company Number: CA-MICRO LABS LIMITED-ML2022-01033

PATIENT
  Age: 59 Year

DRUGS (2)
  1. RANOLAZINE [Suspect]
     Active Substance: RANOLAZINE
  2. AMIODARONE [Concomitant]
     Active Substance: AMIODARONE

REACTIONS (5)
  - Angina pectoris [Recovered/Resolved]
  - Medication error [Unknown]
  - Product dispensing error [Unknown]
  - Headache [Recovered/Resolved]
  - Constipation [Recovered/Resolved]
